FAERS Safety Report 7995898-4 (Version None)
Quarter: 2011Q4

REPORT INFORMATION
  Report Type: 
  Country: None (occurrence: None)
  Receive Date: 20111220
  Receipt Date: 20111216
  Transmission Date: 20120403
  Serious: Yes (Other)
  Sender: FDA-Public Use
  Company Number: BR-ROCHE-729103

PATIENT
  Sex: Female
  Weight: 74 kg

DRUGS (14)
  1. PREDNISONE TAB [Concomitant]
  2. OMEPRAZOLE [Concomitant]
  3. CALCIUM/VITAMIN D [Concomitant]
     Dosage: DOSE: 500MG + 700MG
  4. MABTHERA [Suspect]
     Dosage: DOSE: 100MG/10 ML, FREQUENCY: 1000 MG IN EACH DOSE
     Route: 042
     Dates: start: 20100415, end: 20100501
  5. MABTHERA [Suspect]
     Route: 042
  6. CYMBALTA [Concomitant]
  7. LEXOTAN [Concomitant]
  8. CALCIUM [Concomitant]
  9. MABTHERA [Suspect]
     Indication: RHEUMATOID ARTHRITIS
     Dosage: FORM:INFUSION;100MG/10ML
     Route: 042
  10. CARVEDILOL [Concomitant]
  11. FLANCOX [Concomitant]
  12. METHOTREXATE [Concomitant]
  13. LEVOTHYROXINE SODIUM [Concomitant]
  14. MABTHERA [Suspect]
     Route: 042

REACTIONS (10)
  - FIBROMYALGIA [None]
  - MUSCULOSKELETAL PAIN [None]
  - BONE DISORDER [None]
  - MALAISE [None]
  - URINARY TRACT INFECTION [None]
  - OSTEOPENIA [None]
  - ARTHRALGIA [None]
  - CARDIAC DISORDER [None]
  - THYROID FUNCTION TEST ABNORMAL [None]
  - HYPOTENSION [None]
